FAERS Safety Report 5517317-X (Version None)
Quarter: 2007Q4

REPORT INFORMATION
  Report Type: 
  Country: None (occurrence: None)
  Receive Date: 20071114
  Receipt Date: 20071018
  Transmission Date: 20080405
  Serious: No
  Sender: FDA-Public Use
  Company Number: A0688117A

PATIENT
  Age: 84 Year
  Sex: Male

DRUGS (1)
  1. COMMIT [Suspect]
     Indication: SMOKING CESSATION THERAPY

REACTIONS (2)
  - INTENTIONAL DRUG MISUSE [None]
  - PARAESTHESIA ORAL [None]
